FAERS Safety Report 4378447-1 (Version None)
Quarter: 2004Q2

REPORT INFORMATION
  Report Type: 
  Country: None (occurrence: None)
  Receive Date: 20040609
  Receipt Date: 20040527
  Transmission Date: 20050107
  Serious: Yes (Hospitalization)
  Sender: FDA-Public Use
  Company Number: S04-USA-03034-01

PATIENT
  Age: 55 Year
  Sex: Female

DRUGS (2)
  1. LEXAPRO [Suspect]
     Indication: DEPRESSION
     Dates: start: 20040525, end: 20040525
  2. LEXAPRO [Suspect]
     Indication: DEPRESSION
     Dosage: 10 MG QD PO
     Route: 048
     Dates: start: 20040101, end: 20040401

REACTIONS (4)
  - BLOOD BILIRUBIN INCREASED [None]
  - COMA [None]
  - OVERDOSE [None]
  - TREATMENT NONCOMPLIANCE [None]
